FAERS Safety Report 9054733 (Version 6)
Quarter: 2013Q4

REPORT INFORMATION
  Report Type: Report from Study
  Country: US (occurrence: US)
  Receive Date: 20130208
  Receipt Date: 20131122
  Transmission Date: 20140711
  Serious: Yes (Life-Threatening, Hospitalization, Disabling)
  Sender: FDA-Public Use
  Company Number: PHEH2013US003020

PATIENT
  Age: 64 Year
  Sex: Female

DRUGS (16)
  1. GILENYA [Suspect]
     Indication: MULTIPLE SCLEROSIS
     Dosage: 0.5 MG, QD
     Route: 048
     Dates: start: 20110909, end: 201302
  2. AMPYRA [Suspect]
     Indication: GAIT DISTURBANCE
     Dosage: 10 MG, BID
     Route: 048
     Dates: start: 20121109
  3. ASPIRIN [Concomitant]
     Dosage: 81 MG, UNK
  4. ATORVASTATIN [Concomitant]
  5. CLOPIDOGREL [Concomitant]
  6. FUROSEMIDE [Concomitant]
  7. IRON [Concomitant]
  8. METOPROLOL [Concomitant]
  9. DOXEPIN [Concomitant]
  10. DIMETHYL FUMARATE [Concomitant]
  11. MELOXICAM [Concomitant]
  12. POTASSIUM [Concomitant]
  13. MIRAPEX [Concomitant]
  14. PREMARIN [Concomitant]
  15. MIDRIN [Concomitant]
  16. BACLOFEN [Concomitant]

REACTIONS (12)
  - Multi-organ failure [Unknown]
  - Heart rate irregular [Recovering/Resolving]
  - Myocardial infarction [Recovered/Resolved]
  - Feeling abnormal [Recovering/Resolving]
  - Blood cholesterol increased [Recovering/Resolving]
  - Obstruction [Recovering/Resolving]
  - Brain injury [Unknown]
  - Memory impairment [Not Recovered/Not Resolved]
  - Abasia [Unknown]
  - Aphasia [Unknown]
  - Akinesia [Unknown]
  - Asthenia [Not Recovered/Not Resolved]
